FAERS Safety Report 7699117-8 (Version None)
Quarter: 2011Q3

REPORT INFORMATION
  Report Type: 
  Country: None (occurrence: None)
  Receive Date: 20110819
  Receipt Date: 20110817
  Transmission Date: 20111222
  Serious: No
  Sender: FDA-Public Use
  Company Number: US-TEVA-296905USA

PATIENT
  Sex: Female

DRUGS (4)
  1. HYDROXYCHLOROQUINE [Concomitant]
  2. GABAPENTIN [Concomitant]
  3. BACLOFEN [Concomitant]
  4. COPAXONE [Suspect]
     Indication: MULTIPLE SCLEROSIS
     Route: 058
     Dates: start: 20101201

REACTIONS (4)
  - PRURITUS [None]
  - FACE OEDEMA [None]
  - URTICARIA [None]
  - DYSPNOEA [None]
